FAERS Safety Report 7378495-3 (Version None)
Quarter: 2011Q1

REPORT INFORMATION
  Report Type: 
  Country: None (occurrence: None)
  Receive Date: 20110328
  Receipt Date: 20101221
  Transmission Date: 20110831
  Serious: Yes (Other)
  Sender: FDA-Public Use
  Company Number: US-AMGEN-USASP2010006386

PATIENT
  Age: 65 Year
  Sex: Female

DRUGS (4)
  1. ENBREL [Suspect]
     Indication: PSORIATIC ARTHROPATHY
     Dosage: 50 MG, 2 TIMES/WK
     Dates: start: 20040101
  2. HUMIRA [Concomitant]
     Indication: PSORIASIS
  3. HUMIRA [Concomitant]
     Indication: PSORIATIC ARTHROPATHY
     Dosage: UNK
     Dates: start: 20080101, end: 20101201
  4. ENBREL [Suspect]
     Indication: PSORIASIS

REACTIONS (7)
  - HEADACHE [None]
  - BLOOD GLUCOSE INCREASED [None]
  - UPPER RESPIRATORY TRACT INFECTION [None]
  - MYOCARDIAL INFARCTION [None]
  - COUGH [None]
  - RASH [None]
  - PSORIASIS [None]
